FAERS Safety Report 19456698 (Version 1)
Quarter: 2021Q2

REPORT INFORMATION
  Report Type: Spontaneous
  Country: US (occurrence: US)
  Receive Date: 20210624
  Receipt Date: 20210624
  Transmission Date: 20210717
  Serious: Yes (Other)
  Sender: FDA-Public Use
  Company Number: US-DRREDDYS-LIT/USA/21/0136760

PATIENT
  Age: 71 Year
  Sex: Male

DRUGS (8)
  1. MONTELUKAST [Suspect]
     Active Substance: MONTELUKAST SODIUM
     Indication: GRANULOMA ANNULARE
  2. ASPIRIN. [Suspect]
     Active Substance: ASPIRIN
     Indication: GRANULOMA ANNULARE
  3. NIACINAMIDE [Suspect]
     Active Substance: NIACINAMIDE
     Indication: GRANULOMA ANNULARE
  4. CALCIPOTRIENE. [Suspect]
     Active Substance: CALCIPOTRIENE
     Indication: GRANULOMA ANNULARE
  5. DAPSONE. [Suspect]
     Active Substance: DAPSONE
     Indication: GRANULOMA ANNULARE
  6. BETAMETHASONE. [Suspect]
     Active Substance: BETAMETHASONE
     Indication: GRANULOMA ANNULARE
  7. TRIAMCINOLONE [Suspect]
     Active Substance: TRIAMCINOLONE
     Indication: GRANULOMA ANNULARE
     Route: 026
  8. PSORALEN [Suspect]
     Active Substance: PSORALEN
     Indication: GRANULOMA ANNULARE

REACTIONS (1)
  - Drug ineffective [Unknown]
